FAERS Safety Report 8612043-2 (Version None)
Quarter: 2012Q3

REPORT INFORMATION
  Report Type: 
  Country: None (occurrence: None)
  Receive Date: 20120822
  Receipt Date: 20120808
  Transmission Date: 20120928
  Serious: Yes (Death)
  Sender: FDA-Public Use
  Company Number: FR-FRI-1000037817

PATIENT
  Sex: Male
  Weight: 76 kg

DRUGS (10)
  1. ASPIRIN [Concomitant]
     Dosage: 75 MG
     Route: 048
     Dates: end: 20120712
  2. DIAMOX [Concomitant]
     Route: 048
     Dates: end: 20120712
  3. NEBIVOLOL [Suspect]
     Indication: CARDIAC FAILURE
     Dosage: 5 MG
     Route: 048
     Dates: start: 20120711, end: 20120712
  4. ATORVASTATIN [Concomitant]
     Dosage: 10 MG
     Route: 048
     Dates: end: 20120712
  5. NITROGLYCERIN [Concomitant]
     Dosage: 1 PATCH
     Route: 062
     Dates: end: 20120712
  6. LASIX [Concomitant]
     Dosage: 40 MG
     Route: 048
     Dates: end: 20120712
  7. PLAVIX [Concomitant]
     Dosage: 75 MG
     Route: 048
     Dates: end: 20120712
  8. RANITIDINE [Concomitant]
     Dosage: 30 MG
     Route: 048
     Dates: end: 20120712
  9. DITROPAN [Concomitant]
     Route: 048
     Dates: end: 20120712
  10. RAMIPRIL [Concomitant]
     Dosage: 5 MG
     Route: 048
     Dates: end: 20120712

REACTIONS (3)
  - HYPOVENTILATION [None]
  - INTERCEPTED DRUG PRESCRIBING ERROR [None]
  - CARDIAC ARREST [None]
